FAERS Safety Report 7674411-5 (Version None)
Quarter: 2011Q3

REPORT INFORMATION
  Report Type: 
  Country: None (occurrence: None)
  Receive Date: 20110810
  Receipt Date: 20110802
  Transmission Date: 20111222
  Serious: Yes (Hospitalization)
  Sender: FDA-Public Use
  Company Number: JP-ELI_LILLY_AND_COMPANY-JP201107005864

PATIENT
  Age: 60 Year
  Sex: Female

DRUGS (3)
  1. FOLIC ACID [Concomitant]
     Route: 065
  2. VITAMIN B-12 [Concomitant]
  3. ALIMTA [Suspect]
     Indication: NON-SMALL CELL LUNG CANCER
     Dosage: 700 MG, OTHER
     Route: 042
     Dates: start: 20090625

REACTIONS (2)
  - LIVER DISORDER [None]
  - PLATELET COUNT DECREASED [None]
